FAERS Safety Report 5163157-3 (Version None)
Quarter: 2006Q4

REPORT INFORMATION
  Report Type: 
  Country: None (occurrence: None)
  Receive Date: 20061204
  Receipt Date: 20061121
  Transmission Date: 20070319
  Serious: Yes (Congenital Anomaly, Other)
  Sender: FDA-Public Use
  Company Number: CN-JNJFOC-20061104639

PATIENT
  Sex: Female
  Weight: 3.45 kg

DRUGS (1)
  1. GYNO-DAKTARIN [Suspect]
     Indication: DRUG EXPOSURE DURING PREGNANCY

REACTIONS (1)
  - MELANOCYTIC NAEVUS [None]
